FAERS Safety Report 13939211 (Version 1)
Quarter: 2017Q3

REPORT INFORMATION
  Report Type: Report from Study
  Country: CN (occurrence: CN)
  Receive Date: 20170906
  Receipt Date: 20170906
  Transmission Date: 20171127
  Serious: Yes (Other)
  Sender: FDA-Public Use
  Company Number: CN-BAXTER-2017BAX031944

PATIENT

DRUGS (3)
  1. 20% MANNITOL INJECTION [Suspect]
     Active Substance: MANNITOL
     Indication: INTRACRANIAL PRESSURE INCREASED
     Dosage: WITH ALTERNATING DRIP INFUSIONS
     Route: 041
  2. GLYCEROL-FRUCTOSE [Suspect]
     Active Substance: FRUCTOSE\GLYCERIN
     Indication: INTRACRANIAL PRESSURE INCREASED
     Dosage: WITH ALTERNATING DRIP INFUSION
     Route: 041
  3. GLYCEROL-FRUCTOSE [Suspect]
     Active Substance: FRUCTOSE\GLYCERIN
     Route: 041

REACTIONS (1)
  - Renal injury [Unknown]
